FAERS Safety Report 15997418 (Version 1)
Quarter: 2019Q1

REPORT INFORMATION
  Report Type: Report from Study
  Country: DE (occurrence: DE)
  Receive Date: 20190222
  Receipt Date: 20190222
  Transmission Date: 20190418
  Serious: Yes (Hospitalization)
  Sender: FDA-Public Use
  Company Number: DE-EISAI MEDICAL RESEARCH-EC-2019-050579

PATIENT
  Age: 55 Year
  Sex: Male

DRUGS (3)
  1. KISPLYX [Suspect]
     Active Substance: LENVATINIB
     Route: 048
     Dates: start: 201901
  2. EVEROLIMUS. [Concomitant]
     Active Substance: EVEROLIMUS
  3. KISPLYX [Suspect]
     Active Substance: LENVATINIB
     Indication: RENAL CELL CARCINOMA
     Dosage: UNKNOWN
     Route: 048
     Dates: start: 2018, end: 201901

REACTIONS (4)
  - Diarrhoea [Unknown]
  - Dehydration [Unknown]
  - Decreased appetite [Unknown]
  - Ascites [Not Recovered/Not Resolved]

NARRATIVE: CASE EVENT DATE: 201901
